FAERS Safety Report 7160969-1 (Version None)
Quarter: 2010Q4

REPORT INFORMATION
  Report Type: 
  Country: None (occurrence: None)
  Receive Date: 20101214
  Receipt Date: 20101208
  Transmission Date: 20110411
  Serious: Yes (Death, Life-Threatening, Hospitalization)
  Sender: FDA-Public Use
  Company Number: US-BRISTOL-MYERS SQUIBB COMPANY-13947288

PATIENT
  Age: 71 Year
  Sex: Female
  Weight: 45 kg

DRUGS (13)
  1. PACLITAXEL [Suspect]
     Indication: BREAST CANCER
     Dosage: 90 MG/M2, FREQUENCY:DAYS 1, 8, 15 ;EVERY 28 DAYS; 140 MG FROM 29-JUN-2007 TO 13-JUL-2007
     Route: 042
     Dates: start: 20070807, end: 20070921
  2. BEVACIZUMAB [Suspect]
     Indication: BREAST CANCER
     Dosage: 10 MG/KG,FREQUENCY:DAYS 1+15 EVERY 28 DAYS IV; 509 MG FROM 29-JUN-2007 TO 13-JUL-2007
     Route: 042
     Dates: start: 20070807, end: 20070921
  3. FOLIC ACID [Concomitant]
     Route: 048
     Dates: start: 20010101
  4. TOPROL-XL [Concomitant]
     Indication: HYPERTENSION
     Route: 048
     Dates: start: 20010101
  5. PLAVIX [Concomitant]
     Indication: HYPERCHOLESTEROLAEMIA
     Route: 048
     Dates: start: 20010101
  6. IMDUR [Concomitant]
     Indication: PROPHYLAXIS
     Route: 048
     Dates: start: 20010101
  7. CIMETIDINE [Concomitant]
     Indication: PROPHYLAXIS
     Route: 048
     Dates: start: 20010101
  8. OXYCODONE [Concomitant]
     Route: 048
     Dates: start: 20060726
  9. CADUET [Concomitant]
     Indication: HYPERTENSION
     Route: 048
     Dates: start: 20060823
  10. CADUET [Concomitant]
     Indication: CARDIAC FAILURE
     Route: 048
     Dates: start: 20060823
  11. BENADRYL [Concomitant]
     Route: 048
     Dates: start: 20070713
  12. CODEINE + GUAIFENESIN [Concomitant]
     Route: 048
     Dates: start: 20070719
  13. MEGACE [Concomitant]
     Route: 048
     Dates: start: 20070824

REACTIONS (5)
  - CARDIOMYOPATHY [None]
  - MALIGNANT NEOPLASM PROGRESSION [None]
  - PNEUMONITIS [None]
  - RENAL FAILURE [None]
  - SEPTIC SHOCK [None]
